FAERS Safety Report 20775313 (Version 1)
Quarter: 2022Q2

REPORT INFORMATION
  Report Type: Spontaneous
  Country: US (occurrence: US)
  Receive Date: 20220502
  Receipt Date: 20220502
  Transmission Date: 20220721
  Serious: Yes (Death, Hospitalization, Other)
  Sender: FDA-Public Use
  Company Number: US-GW PHARMA-202110USGW05186

PATIENT
  Sex: Male
  Weight: 24.036 kg

DRUGS (5)
  1. EPIDIOLEX [Suspect]
     Active Substance: CANNABIDIOL
     Indication: Lennox-Gastaut syndrome
     Dosage: 17.47 MG/KG/DAY, 420 MILLIGRAM, QD (200 MG IN AM AND 220 MG IN PM)
     Dates: start: 20200529
  2. EPIDIOLEX [Suspect]
     Active Substance: CANNABIDIOL
     Dosage: ADDITIONAL BATCH NUMBER
  3. EPIDIOLEX [Suspect]
     Active Substance: CANNABIDIOL
     Dosage: 17.47 MG/KG/DAY, 420 MILLIGRAM, QD (200 MG IN AM AND 220 MG IN PM)
     Dates: start: 20200529
  4. EPIDIOLEX [Suspect]
     Active Substance: CANNABIDIOL
     Dosage: ADDITIONAL BATCH NUMBER
  5. EPIDIOLEX [Suspect]
     Active Substance: CANNABIDIOL
     Dosage: 2 MILLILITER IN AM AND 2.2ML IN PM

REACTIONS (5)
  - Death [Unknown]
  - Hospitalisation [Unknown]
  - Hospitalisation [Unknown]
  - Emergency care [Unknown]
  - Emergency care [Unknown]

NARRATIVE: CASE EVENT DATE: 20210101
